FAERS Safety Report 10041019 (Version 2)
Quarter: 2014Q3

REPORT INFORMATION
  Report Type: Report from Study
  Country: GR (occurrence: GR)
  Receive Date: 20140327
  Receipt Date: 20140702
  Transmission Date: 20150326
  Serious: Yes (Hospitalization)
  Sender: FDA-Public Use
  Company Number: PHHY2014GR033710

PATIENT
  Sex: Male
  Weight: 42 kg

DRUGS (2)
  1. COLCHICINE. [Concomitant]
     Active Substance: COLCHICINE
     Indication: AMYLOIDOSIS
     Dosage: 1 MG, UNK
     Dates: start: 20140226
  2. ILARIS [Suspect]
     Active Substance: CANAKINUMAB
     Indication: BRUCELLOSIS
     Dosage: 150 MG, QMO
     Route: 058
     Dates: start: 20131101

REACTIONS (4)
  - Viral infection [Unknown]
  - Agranulocytosis [Recovered/Resolved]
  - Lymphocyte count increased [Unknown]
  - Pyrexia [Unknown]

NARRATIVE: CASE EVENT DATE: 20140314
